FAERS Safety Report 25110050 (Version 1)
Quarter: 2025Q1

REPORT INFORMATION
  Report Type: Spontaneous
  Country: IN (occurrence: IN)
  Receive Date: 20250324
  Receipt Date: 20250324
  Transmission Date: 20250408
  Serious: Yes (Hospitalization, Other)
  Sender: Haleon PLC
  Company Number: IN-HALEON-2234011

PATIENT
  Age: 65 Year
  Sex: Female

DRUGS (1)
  1. DICLOFENAC [Suspect]
     Active Substance: DICLOFENAC
     Indication: Back pain

REACTIONS (9)
  - Gastrointestinal haemorrhage [Recovered/Resolved]
  - Intestinal diaphragm disease [Recovered/Resolved]
  - Anaemia [Recovered/Resolved]
  - Faeces discoloured [Recovered/Resolved]
  - Pallor [Recovered/Resolved]
  - Iron deficiency [Recovered/Resolved]
  - Jejunal ulcer [Recovered/Resolved]
  - Erythema [Recovered/Resolved]
  - Skin exfoliation [Recovered/Resolved]
